FAERS Safety Report 7089018-0 (Version None)
Quarter: 2010Q4

REPORT INFORMATION
  Report Type: 
  Country: None (occurrence: None)
  Receive Date: 20101029
  Receipt Date: 20101013
  Transmission Date: 20110411
  Serious: Yes (Hospitalization)
  Sender: FDA-Public Use
  Company Number: 2010003600

PATIENT
  Age: 76 Year
  Sex: Male

DRUGS (2)
  1. ERLOTINIB HYDROCHLORIDE [Suspect]
     Indication: NON-SMALL CELL LUNG CANCER
     Dosage: (QD),ORAL
     Route: 048
     Dates: start: 20100617, end: 20100723
  2. PERTUZUMAB [Suspect]
     Indication: NON-SMALL CELL LUNG CANCER
     Dosage: (Q3W),INTRAVENOUS
     Route: 042
     Dates: start: 20100617, end: 20100707

REACTIONS (4)
  - ADRENAL INSUFFICIENCY [None]
  - ASTHENIA [None]
  - DEHYDRATION [None]
  - PNEUMOPERITONEUM [None]
